FAERS Safety Report 19965285 (Version 1)
Quarter: 2021Q4

REPORT INFORMATION
  Report Type: Spontaneous
  Country: US (occurrence: US)
  Receive Date: 20211018
  Receipt Date: 20211018
  Transmission Date: 20220303
  Serious: No
  Sender: FDA-Public Use
  Company Number: US-PFIZER INC-2021432212

PATIENT
  Age: 56 Year
  Sex: Female

DRUGS (18)
  1. XELJANZ XR [Suspect]
     Active Substance: TOFACITINIB CITRATE
     Indication: Psoriatic arthropathy
     Dosage: 11 MG, DAILY
     Route: 048
     Dates: start: 202010
  2. NYSTATIN AND TRIAMCINOLONE [Concomitant]
     Active Substance: NYSTATIN\TRIAMCINOLONE ACETONIDE
     Dosage: UNK
  3. CLOBETASOL E [Concomitant]
     Dosage: UNK
  4. ALBUTEROL SULFATE [Concomitant]
     Active Substance: ALBUTEROL SULFATE
     Dosage: UNK
  5. RETINOL [Concomitant]
     Active Substance: RETINOL
     Dosage: UNK
  6. VITAMIN C [Concomitant]
     Active Substance: ASCORBIC ACID
     Dosage: UNK
  7. VITAMIN B12 [Concomitant]
     Active Substance: CYANOCOBALAMIN
     Dosage: UNK
  8. CHOLECALCIFEROL [Concomitant]
     Active Substance: CHOLECALCIFEROL
     Dosage: UNK
  9. HERBALS\TURMERIC [Concomitant]
     Active Substance: HERBALS\TURMERIC
     Dosage: UNK
  10. CURCUMIN [Concomitant]
     Active Substance: CURCUMIN
     Dosage: UNK
  11. HYDROCORTISONE ACETATE [Concomitant]
     Active Substance: HYDROCORTISONE ACETATE
     Dosage: UNK
  12. ECHINACEA + GOLDENSEAL [Concomitant]
     Dosage: UNK
  13. MAGNESIUM CITRATE [Concomitant]
     Active Substance: MAGNESIUM CITRATE
     Dosage: UNK
  14. HERBALS [Concomitant]
     Active Substance: HERBALS
     Dosage: UNK
  15. MARSHMALLOW [ALTHAEA OFFICINALIS ROOT] [Concomitant]
     Dosage: UNK
  16. QUERCETIN [Concomitant]
     Active Substance: QUERCETIN
     Dosage: UNK
  17. SKULLCAP [SCUTELLARIA LATERIFLORA HERB] [Concomitant]
     Dosage: UNK
  18. ELDERBERRY EXTRACT [Concomitant]
     Dosage: UNK

REACTIONS (2)
  - COVID-19 [Recovering/Resolving]
  - Fungal skin infection [Not Recovered/Not Resolved]

NARRATIVE: CASE EVENT DATE: 20210404
